FAERS Safety Report 7274876-7 (Version None)
Quarter: 2011Q1

REPORT INFORMATION
  Report Type: 
  Country: None (occurrence: None)
  Receive Date: 20110204
  Receipt Date: 20110128
  Transmission Date: 20110831
  Serious: Yes (Death)
  Sender: FDA-Public Use
  Company Number: RU-CUBIST-2011S1000053

PATIENT
  Age: 60 Year
  Sex: Male

DRUGS (5)
  1. ANTIFUNGALS [Concomitant]
     Indication: PRODUCT USED FOR UNKNOWN INDICATION
  2. CUBICIN [Suspect]
     Route: 065
     Dates: start: 20101210, end: 20101211
  3. ANTIBIOTICS [Concomitant]
     Indication: PRODUCT USED FOR UNKNOWN INDICATION
  4. ANTIVIRALS NOS [Concomitant]
     Indication: PRODUCT USED FOR UNKNOWN INDICATION
  5. CUBICIN [Suspect]
     Indication: PNEUMONIA
     Route: 065
     Dates: start: 20101210, end: 20101211

REACTIONS (4)
  - SEPTIC SHOCK [None]
  - SEPSIS [None]
  - RESPIRATORY FAILURE [None]
  - PNEUMONIA NECROTISING [None]
